FAERS Safety Report 6928218-4 (Version None)
Quarter: 2010Q3

REPORT INFORMATION
  Report Type: 
  Country: None (occurrence: None)
  Receive Date: 20100810
  Receipt Date: 20100726
  Transmission Date: 20110219
  Serious: Yes (Death, Hospitalization)
  Sender: FDA-Public Use
  Company Number: KV201000183

PATIENT
  Age: 70 Year
  Sex: Female
  Weight: 68.9 kg

DRUGS (14)
  1. ISOSORBIDE MONONITRATE [Suspect]
     Indication: ANGINA PECTORIS
     Dosage: 30 MG, QD, ORAL
     Route: 048
     Dates: start: 20060130, end: 20080809
  2. ISOSORBIDE MONONITRATE [Suspect]
     Indication: CORONARY ARTERY DISEASE
     Dosage: 30 MG, QD, ORAL
     Route: 048
     Dates: start: 20060130, end: 20080809
  3. ISOSORBIDE MONONITRATE [Suspect]
     Indication: MYOCARDIAL ISCHAEMIA
     Dosage: 30 MG, QD, ORAL
     Route: 048
     Dates: start: 20060130, end: 20080809
  4. ANESTHETICS, GENERAL [Concomitant]
  5. BETAMETH /00008502/ (BETAMETHASONE SODIUM PHOSPHATE) [Concomitant]
  6. ATENOLOL [Concomitant]
  7. LISINOPRIL [Concomitant]
  8. LOVASTATIN [Concomitant]
  9. CLINDAMYCIN HCL [Concomitant]
  10. NITROQUICK (GLYCERYL TRINITRATE) [Concomitant]
  11. CHOLESTYRAMIN (COLESTYRAMINE) [Concomitant]
  12. METAMUCIL /00029101/ (PLANTAGO OVATA) [Concomitant]
  13. CENTRUM SILVER /01292501/ (ASCORBIC ACID, CALCIUM, MINERALS NOS, RETIN [Concomitant]
  14. ASPIRIN [Concomitant]

REACTIONS (31)
  - ABDOMINAL PAIN [None]
  - ABSCESS INTESTINAL [None]
  - APPENDICITIS [None]
  - APPENDIX DISORDER [None]
  - BACK PAIN [None]
  - BRADYCARDIA [None]
  - CARDIO-RESPIRATORY ARREST [None]
  - CHEST PAIN [None]
  - DECREASED APPETITE [None]
  - DEFAECATION URGENCY [None]
  - DIARRHOEA [None]
  - DISSEMINATED INTRAVASCULAR COAGULATION [None]
  - DYSPNOEA [None]
  - FAECAL INCONTINENCE [None]
  - FLATULENCE [None]
  - GENERAL PHYSICAL HEALTH DETERIORATION [None]
  - HAEMORRHAGIC ANAEMIA [None]
  - HYPOTENSION [None]
  - ILEUS [None]
  - INSOMNIA [None]
  - INTESTINAL PERFORATION [None]
  - LARGE INTESTINE PERFORATION [None]
  - MALAISE [None]
  - METABOLIC ACIDOSIS [None]
  - NAUSEA [None]
  - NIGHTMARE [None]
  - OXYGEN SATURATION DECREASED [None]
  - REFUSAL OF TREATMENT BY PATIENT [None]
  - SEPSIS [None]
  - SEPTIC SHOCK [None]
  - TACHYCARDIA [None]
